FAERS Safety Report 17161992 (Version 1)
Quarter: 2019Q4

REPORT INFORMATION
  Report Type: Spontaneous
  Country: US (occurrence: US)
  Receive Date: 20191122
  Receipt Date: 20191122
  Transmission Date: 20200122
  Serious: Yes (Hospitalization, Other)
  Sender: FDA-Public Use
  Company Number: None

PATIENT
  Sex: Male

DRUGS (26)
  1. ASPIRIN. [Concomitant]
     Active Substance: ASPIRIN
  2. BREOELLIPTA [Concomitant]
  3. FUROSEMIDE. [Concomitant]
     Active Substance: FUROSEMIDE
  4. MONTELUKAST [Concomitant]
     Active Substance: MONTELUKAST SODIUM
  5. RANITIDINE. [Concomitant]
     Active Substance: RANITIDINE
  6. UROCIT-K [Concomitant]
     Active Substance: POTASSIUM CITRATE
  7. XOLAIR [Suspect]
     Active Substance: OMALIZUMAB
     Indication: PRODUCT USED FOR UNKNOWN INDICATION
     Dosage: ?          OTHER FREQUENCY:EVERY 4 WEEKS;?
     Route: 058
     Dates: start: 20160120
  8. DIVALPROEX [Concomitant]
     Active Substance: DIVALPROEX SODIUM
  9. ELIQUIS ST P [Concomitant]
  10. MOMETASONE [Concomitant]
     Active Substance: MOMETASONE
  11. TESTOST CYP [Concomitant]
     Active Substance: TESTOSTERONE CYPIONATE
  12. BRIVIACT [Concomitant]
     Active Substance: BRIVARACETAM
  13. POT CITRATE [Concomitant]
     Active Substance: POTASSIUM CITRATE
  14. HYOSCYAMINE. [Concomitant]
     Active Substance: HYOSCYAMINE
  15. SOTALOL HCL [Concomitant]
     Active Substance: SOTALOL
  16. LOW DOSE ASPIRIN [Concomitant]
     Active Substance: ASPIRIN
  17. CARBAMAZEPIN [Concomitant]
     Active Substance: CARBAMAZEPINE
  18. ATROVASTATIN [Concomitant]
     Active Substance: ATORVASTATIN CALCIUM
  19. POT CL MICRO [Concomitant]
  20. VIMPAT [Concomitant]
     Active Substance: LACOSAMIDE
  21. ZOCOR [Concomitant]
     Active Substance: SIMVASTATIN
  22. BENZONATATE. [Concomitant]
     Active Substance: BENZONATATE
  23. BUDESONIDE. [Concomitant]
     Active Substance: BUDESONIDE
  24. ELIQUIS [Concomitant]
     Active Substance: APIXABAN
  25. IBUPROFEN. [Concomitant]
     Active Substance: IBUPROFEN
  26. PREDNISONE. [Concomitant]
     Active Substance: PREDNISONE

REACTIONS (2)
  - Hepatotoxicity [None]
  - Cerebrovascular accident [None]
